FAERS Safety Report 10211519 (Version 1)
Quarter: 2014Q2

REPORT INFORMATION
  Report Type: Report from Study
  Country: US (occurrence: US)
  Receive Date: 20140602
  Receipt Date: 20140602
  Transmission Date: 20141212
  Serious: Yes (Other)
  Sender: FDA-Public Use
  Company Number: US-IPSEN BIOPHARMACEUTICALS, INC.-2014-2636

PATIENT
  Age: 14 Year
  Sex: Male

DRUGS (2)
  1. INCRELEX [Suspect]
     Indication: PRIMARY INSULIN LIKE GROWTH FACTOR-1 DEFICIENCY
     Route: 065
     Dates: start: 20070927
  2. INCRELEX [Suspect]
     Route: 065
     Dates: start: 20070523, end: 20070926

REACTIONS (2)
  - Cataract [Unknown]
  - Drug dose omission [Unknown]
